FAERS Safety Report 4662443-0 (Version None)
Quarter: 2005Q2

REPORT INFORMATION
  Report Type: 
  Country: None (occurrence: None)
  Receive Date: 20050512
  Receipt Date: 20050429
  Transmission Date: 20051028
  Serious: Yes (Life-Threatening, Hospitalization, Other)
  Sender: FDA-Public Use
  Company Number: FRWYE632329APR05

PATIENT
  Age: 26 Year
  Sex: Female

DRUGS (1)
  1. LEVONORGESTREL AND ETHINYL ESTRADIOL [Suspect]
     Indication: ORAL CONTRACEPTION
     Dosage: 1 TABLET 1X PER 1 DAY
     Route: 048
     Dates: start: 19930615, end: 20010706

REACTIONS (5)
  - BRONCHITIS [None]
  - COAGULATION FACTOR VIII LEVEL INCREASED [None]
  - DRUG INEFFECTIVE [None]
  - GENE MUTATION IDENTIFICATION TEST POSITIVE [None]
  - PULMONARY EMBOLISM [None]
